FAERS Safety Report 7420279-1 (Version None)
Quarter: 2011Q2

REPORT INFORMATION
  Report Type: 
  Country: None (occurrence: None)
  Receive Date: 20110418
  Receipt Date: 20110405
  Transmission Date: 20111010
  Serious: Yes (Other)
  Sender: FDA-Public Use
  Company Number: PHHY2011FR28575

PATIENT
  Age: 74 Year
  Sex: Female
  Weight: 54 kg

DRUGS (6)
  1. ACLASTA [Suspect]
     Indication: OSTEOPOROSIS
     Dosage: UNK
     Route: 042
     Dates: start: 20110101
  2. CALCIDOSE VITAMINE D [Concomitant]
  3. CHONDROSULF [Concomitant]
  4. MONOCRIXO [Concomitant]
  5. CRESTOR [Concomitant]
  6. AVLOCARDYL [Concomitant]

REACTIONS (5)
  - POLLAKIURIA [None]
  - RED BLOOD CELLS URINE POSITIVE [None]
  - CHROMATURIA [None]
  - WHITE BLOOD CELLS URINE POSITIVE [None]
  - BLOOD CREATINE PHOSPHOKINASE INCREASED [None]
